FAERS Safety Report 20659495 (Version 1)
Quarter: 2022Q1

REPORT INFORMATION
  Report Type: Spontaneous
  Country: HR (occurrence: HR)
  Receive Date: 20220331
  Receipt Date: 20220331
  Transmission Date: 20220423
  Serious: Yes (Other)
  Sender: FDA-Public Use
  Company Number: None

PATIENT
  Age: 32 Year
  Sex: Male

DRUGS (3)
  1. LYRICA [Suspect]
     Active Substance: PREGABALIN
     Dosage: 1050 MG, 1X/DAY
     Route: 048
     Dates: start: 20211008, end: 20211008
  2. SUBOXONE [Suspect]
     Active Substance: BUPRENORPHINE HYDROCHLORIDE\NALOXONE HYDROCHLORIDE
     Dosage: 1 DF = 1 TBL
     Route: 042
     Dates: start: 20211008, end: 20211008
  3. NORMABEL [Suspect]
     Active Substance: DIAZEPAM
     Dosage: 100 MG, 1X/DAY
     Route: 048
     Dates: start: 20211008, end: 20211008

REACTIONS (4)
  - Drug abuse [Unknown]
  - Tremor [Unknown]
  - Intentional product use issue [Unknown]
  - Intentional overdose [Unknown]

NARRATIVE: CASE EVENT DATE: 20211008
